FAERS Safety Report 8816199 (Version 1)
Quarter: 2012Q4

REPORT INFORMATION
  Report Type: 
  Country: US (occurrence: US)
  Receive Date: 20120929
  Receipt Date: 20120929
  Transmission Date: 20130627
  Serious: No
  Sender: FDA-Public Use
  Company Number: US-009507513-1209USA009598

PATIENT
  Sex: Female

DRUGS (3)
  1. SAPHRIS [Suspect]
     Indication: BIPOLAR DISORDER
     Dosage: 5 mg, qd
     Route: 060
  2. REYATAZ [Concomitant]
  3. TRUVADA [Concomitant]

REACTIONS (2)
  - Nervousness [Recovered/Resolved]
  - Inappropriate schedule of drug administration [Unknown]
